APPROVED DRUG PRODUCT: NALTREXONE HYDROCHLORIDE
Active Ingredient: NALTREXONE HYDROCHLORIDE
Strength: 50MG
Dosage Form/Route: TABLET;ORAL
Application: A207905 | Product #001 | TE Code: AB
Applicant: CHARTWELL LIFE MOLECULES LLC
Approved: Jul 21, 2017 | RLD: No | RS: No | Type: RX